FAERS Safety Report 8364108-0 (Version None)
Quarter: 2012Q2

REPORT INFORMATION
  Report Type: 
  Country: None (occurrence: None)
  Receive Date: 20120516
  Receipt Date: 20120510
  Transmission Date: 20120825
  Serious: Yes (Death, Other)
  Sender: FDA-Public Use
  Company Number: US-PFIZER INC-2012049533

PATIENT
  Sex: Female

DRUGS (3)
  1. ACTOS [Concomitant]
     Indication: DIABETES MELLITUS
     Dosage: UNK
     Dates: start: 20050101, end: 20090101
  2. LIPITOR [Concomitant]
     Indication: BLOOD CHOLESTEROL
     Dosage: UNK
     Dates: start: 20050101, end: 20090101
  3. CHANTIX [Suspect]
     Indication: SMOKING CESSATION THERAPY
     Dosage: 0.5MG/1MG
     Dates: start: 20080201, end: 20081201

REACTIONS (5)
  - COMPLETED SUICIDE [None]
  - DEPRESSION [None]
  - ANXIETY [None]
  - ABNORMAL BEHAVIOUR [None]
  - ABNORMAL DREAMS [None]
